FAERS Safety Report 20480989 (Version 5)
Quarter: 2022Q4

REPORT INFORMATION
  Report Type: Report from Study
  Country: US (occurrence: US)
  Receive Date: 20220216
  Receipt Date: 20221117
  Transmission Date: 20230112
  Serious: Yes (Other)
  Sender: FDA-Public Use
  Company Number: US-Taiho Oncology Inc-EU-2022-00391

PATIENT
  Age: 64 Year
  Sex: Female
  Weight: 78.02 kg

DRUGS (2)
  1. LONSURF [Suspect]
     Active Substance: TIPIRACIL HYDROCHLORIDE\TRIFLURIDINE
     Indication: Rectal cancer
     Dosage: CYCLE UNKNOWN
     Route: 048
     Dates: start: 202111
  2. STIVARGA [Suspect]
     Active Substance: REGORAFENIB
     Indication: Product used for unknown indication

REACTIONS (17)
  - Cough [Unknown]
  - Nausea [Unknown]
  - Vomiting [Unknown]
  - Haematochezia [Unknown]
  - Intestinal ulcer [Unknown]
  - Dental restoration failure [Unknown]
  - Dental caries [Unknown]
  - Burning sensation [Unknown]
  - Palmar-plantar erythrodysaesthesia syndrome [Unknown]
  - Glossodynia [Unknown]
  - Pain [Unknown]
  - Weight decreased [Unknown]
  - Fatigue [Unknown]
  - Diarrhoea [Unknown]
  - Illness [Unknown]
  - Malaise [Unknown]
  - Tooth loss [Unknown]

NARRATIVE: CASE EVENT DATE: 20220222
